FAERS Safety Report 7205135-6 (Version None)
Quarter: 2010Q4

REPORT INFORMATION
  Report Type: 
  Country: None (occurrence: None)
  Receive Date: 20101231
  Receipt Date: 20101222
  Transmission Date: 20110411
  Serious: Yes (Hospitalization)
  Sender: FDA-Public Use
  Company Number: US-RANBAXY-2010US-40663

PATIENT
  Age: 22 Year
  Sex: Female

DRUGS (1)
  1. TOPIRAMATE [Suspect]
     Indication: HEADACHE
     Dosage: 200 MG, 2 TABLETS ONCE
     Route: 048

REACTIONS (4)
  - CONFUSIONAL STATE [None]
  - HYPERTENSION [None]
  - METABOLIC ACIDOSIS [None]
  - OFF LABEL USE [None]
